FAERS Safety Report 17450927 (Version 1)
Quarter: 2020Q1

REPORT INFORMATION
  Report Type: Spontaneous
  Country: US (occurrence: US)
  Receive Date: 20200210
  Receipt Date: 20200210
  Transmission Date: 20200409
  Serious: Yes (Hospitalization)
  Sender: FDA-Public Use
  Company Number: None

PATIENT
  Age: 79 Year
  Sex: Male

DRUGS (8)
  1. CARVEDILOL. [Concomitant]
     Active Substance: CARVEDILOL
  2. REPATHA [Suspect]
     Active Substance: EVOLOCUMAB
     Route: 058
  3. CILOSTAZOL. [Concomitant]
     Active Substance: CILOSTAZOL
  4. TELMISARTIN [Concomitant]
  5. WARFARIN [Concomitant]
     Active Substance: WARFARIN
  6. CLOPIDOGREL EZETIMBE [Concomitant]
  7. CHLORTHALID [Concomitant]
     Active Substance: CHLORTHALIDONE
  8. MELOXICAM. [Concomitant]
     Active Substance: MELOXICAM

REACTIONS (2)
  - Post procedural complication [None]
  - Localised infection [None]
